FAERS Safety Report 19243735 (Version 1)
Quarter: 2021Q2

REPORT INFORMATION
  Report Type: Report from Study
  Country: IT (occurrence: IT)
  Receive Date: 20210511
  Receipt Date: 20210511
  Transmission Date: 20210717
  Serious: Yes (Other)
  Sender: FDA-Public Use
  Company Number: IT-VIIV HEALTHCARE LIMITED-IT2021EME097424

PATIENT
  Age: 39 Year
  Sex: Male

DRUGS (1)
  1. ABACAVIRSULPHATE+DOLUTEGRAVIR+LAMIVUDINE [Suspect]
     Active Substance: ABACAVIR SULFATE\DOLUTEGRAVIR SODIUM\LAMIVUDINE
     Indication: HIV INFECTION
     Dosage: UNK

REACTIONS (1)
  - Mitochondrial toxicity [Not Recovered/Not Resolved]
